FAERS Safety Report 9296039 (Version 1)
Quarter: 2013Q2

REPORT INFORMATION
  Report Type: Spontaneous
  Country: AU (occurrence: AU)
  Receive Date: 20130517
  Receipt Date: 20130517
  Transmission Date: 20140414
  Serious: Yes (Other)
  Sender: FDA-Public Use
  Company Number: PHHY2013AU048552

PATIENT
  Sex: Female

DRUGS (8)
  1. METOPROLOL [Suspect]
  2. CLOPIDOGREL [Suspect]
  3. TEMAZEPAM [Suspect]
  4. ALENDRONATE SODIUM [Concomitant]
  5. CALCIUM [Concomitant]
  6. FUROSEMIDE [Concomitant]
  7. RANITIDINE [Concomitant]
  8. SPIRONOLACTON [Concomitant]

REACTIONS (4)
  - Femur fracture [Unknown]
  - Contusion [Unknown]
  - Laceration [Unknown]
  - Fall [Unknown]
